FAERS Safety Report 18905053 (Version 2)
Quarter: 2021Q1

REPORT INFORMATION
  Report Type: Spontaneous
  Country: CN (occurrence: CN)
  Receive Date: 20210217
  Receipt Date: 20210302
  Transmission Date: 20210420
  Serious: Yes (Life-Threatening, Hospitalization, Other)
  Sender: FDA-Public Use
  Company Number: CN-ASTRAZENECA-2021A049455

PATIENT
  Age: 32 Year
  Sex: Male

DRUGS (11)
  1. ISOPRENALINE [Concomitant]
     Active Substance: ISOPROTERENOL HYDROCHLORIDE
     Indication: HEART RATE INCREASED
     Dosage: 0.6 UG / MIN
     Route: 065
  2. HEPARIN [Concomitant]
     Active Substance: HEPARIN SODIUM
     Dosage: 250U/ MIN
     Route: 065
  3. CEFTRIAXONE. [Concomitant]
     Active Substance: CEFTRIAXONE
     Indication: INFECTION
     Route: 065
  4. PIPERACILLIN. [Concomitant]
     Active Substance: PIPERACILLIN SODIUM
     Indication: INFECTION
     Route: 065
  5. ESTAZOLAM. [Suspect]
     Active Substance: ESTAZOLAM
     Dosage: 39 TABLETS (39MG)
     Route: 065
  6. HYPERBARIC OXYGEN [Concomitant]
     Active Substance: OXYGEN
     Dosage: 0.13 MPA FOR 1 HOUR
     Route: 065
  7. VASOACTIVE [Concomitant]
     Indication: HEART RATE
     Route: 065
  8. CARBON MONOXIDE [Suspect]
     Active Substance: CARBON MONOXIDE
     Dosage: AT THAT TIME, THE PATIENT WAS FOUND UNCONSCIOUS IN A ROOM WITH DOORS AND WINDOWS CLOSED FOR ABOUT...
     Route: 055
  9. DOPAMINE [Concomitant]
     Active Substance: DOPAMINE HYDROCHLORIDE
     Indication: BLOOD PRESSURE MEASUREMENT
     Dosage: 13.3 U G. K G ? 1 .MIN ? 1
     Route: 065
  10. QUETIAPINE. [Suspect]
     Active Substance: QUETIAPINE
     Dosage: 48 TABLETS (1200MG)
     Route: 048
  11. TAZOBACTAM [Concomitant]
     Active Substance: TAZOBACTAM
     Indication: INFECTION
     Route: 065

REACTIONS (8)
  - Coma [Recovering/Resolving]
  - Tongue disorder [Recovering/Resolving]
  - Toxicity to various agents [Unknown]
  - Loss of consciousness [Recovering/Resolving]
  - Overdose [Unknown]
  - Eyelid ptosis [Recovering/Resolving]
  - Suicide attempt [Unknown]
  - Somnolence [Recovering/Resolving]

NARRATIVE: CASE EVENT DATE: 20191218
